FAERS Safety Report 5385563-4 (Version None)
Quarter: 2007Q3

REPORT INFORMATION
  Report Type: 
  Country: None (occurrence: None)
  Receive Date: 20070712
  Receipt Date: 20070706
  Transmission Date: 20080115
  Serious: Yes (Hospitalization, Other)
  Sender: FDA-Public Use
  Company Number: DE-BAYER-200710687BVD

PATIENT
  Age: 72 Year
  Sex: Male
  Weight: 34 kg

DRUGS (11)
  1. SORAFENIB [Suspect]
     Indication: HEPATIC CANCER METASTATIC
     Route: 048
     Dates: start: 20050214
  2. PANTOPRAZOLE SODIUM [Concomitant]
     Indication: DYSPEPSIA
     Dates: start: 20050101
  3. PRAVASTATIN [Concomitant]
     Indication: HYPERLIPIDAEMIA
     Dates: start: 20050101
  4. FUROSEMIDE [Concomitant]
     Indication: OEDEMA
     Dates: start: 20050101, end: 20070501
  5. METOPROLOL SUCCINATE [Concomitant]
     Indication: CORONARY ARTERY DISEASE
     Dates: start: 20050101, end: 20070501
  6. ASPIRIN [Concomitant]
     Indication: CORONARY ARTERY DISEASE
     Dates: start: 20010101
  7. DIOVAN [Concomitant]
     Indication: HYPERTENSION
  8. ALLOPURINOL [Concomitant]
     Indication: GOUT
     Dates: start: 20040701
  9. TORSEMIDE [Concomitant]
     Dates: end: 20070401
  10. SIMVASTATIN [Concomitant]
     Route: 048
     Dates: start: 20060101
  11. LOCOL [Concomitant]
     Route: 048
     Dates: start: 20070501

REACTIONS (3)
  - DEHYDRATION [None]
  - DIARRHOEA [None]
  - SYNCOPE [None]
